FAERS Safety Report 11464381 (Version 2)
Quarter: 2015Q3

REPORT INFORMATION
  Report Type: Spontaneous
  Country: US (occurrence: US)
  Receive Date: 20150831
  Receipt Date: 20150903
  Transmission Date: 20151125
  Serious: No
  Sender: FDA-Public Use
  Company Number: US-ELI_LILLY_AND_COMPANY-US201108000226

PATIENT
  Age: 58 Year
  Sex: Female

DRUGS (5)
  1. LOVASTATIN. [Concomitant]
     Active Substance: LOVASTATIN
  2. LYRICA [Concomitant]
     Active Substance: PREGABALIN
  3. CYMBALTA [Suspect]
     Active Substance: DULOXETINE HYDROCHLORIDE
     Dosage: 30 MG, BID
  4. BACLOFEN. [Concomitant]
     Active Substance: BACLOFEN
  5. CYMBALTA [Suspect]
     Active Substance: DULOXETINE HYDROCHLORIDE
     Indication: NEURALGIA
     Dosage: 60 MG, QD

REACTIONS (5)
  - Arthralgia [Recovering/Resolving]
  - Muscle tightness [Recovering/Resolving]
  - Muscle spasms [Recovering/Resolving]
  - Movement disorder [Recovering/Resolving]
  - Joint stiffness [Recovering/Resolving]
